FAERS Safety Report 5885041-X (Version None)
Quarter: 2008Q3

REPORT INFORMATION
  Report Type: 
  Country: None (occurrence: None)
  Receive Date: 20080916
  Receipt Date: 20071206
  Transmission Date: 20090109
  Serious: No
  Sender: FDA-Public Use
  Company Number: US-TYCO HEALTHCARE/MALLINCKRODT-T200701520

PATIENT

DRUGS (5)
  1. MD-GASTROVIEW [Suspect]
     Indication: COMPUTERISED TOMOGRAM
     Dosage: 33 ML, SINGLE
     Route: 048
     Dates: start: 20071204, end: 20071204
  2. VISIPAQUE [Suspect]
     Indication: COMPUTERISED TOMOGRAM
     Dosage: 125 ML, SINGLE
     Route: 042
     Dates: start: 20071204, end: 20071204
  3. PERCOCET [Concomitant]
     Indication: PAIN
     Route: 048
  4. COLACE [Concomitant]
     Route: 048
  5. IBUPROFEN [Concomitant]
     Indication: PAIN
     Route: 048

REACTIONS (2)
  - ABDOMINAL DISTENSION [None]
  - ERYTHEMA [None]
